FAERS Safety Report 16211696 (Version 2)
Quarter: 2019Q4

REPORT INFORMATION
  Report Type: Spontaneous
  Country: ES (occurrence: ES)
  Receive Date: 20190418
  Receipt Date: 20191106
  Transmission Date: 20200122
  Serious: Yes (Hospitalization, Other)
  Sender: FDA-Public Use
  Company Number: ES-SA-2019SA101020

PATIENT
  Age: 85 Year
  Sex: Female

DRUGS (12)
  1. OMEPRAZOLE. [Concomitant]
     Active Substance: OMEPRAZOLE
     Indication: PROPHYLAXIS AGAINST GASTROINTESTINAL ULCER
     Dosage: 20 MG, QD(60MG / 12H || UNIT DOSE FREQUENCY: 120 MG-MILLIGRAMS || DOSE PER DOSE: 60 MG MILLIGRAMS ||
     Route: 048
     Dates: start: 20170129
  2. FUROSEMIDE. [Concomitant]
     Active Substance: FUROSEMIDE
     Indication: CARDIAC FAILURE
     Dosage: 40 MG, Q12H(1-0-1 || UNIT DOSE FREQUENCY: 80 MG-MILLIGRAMS || DOSE PER DOSE: 40 MG-MILLIGRAMS || NUM
     Route: 048
     Dates: start: 20170120
  3. METILPREDNISOLONE [Concomitant]
     Active Substance: METHYLPREDNISOLONE
     Indication: BRONCHOSPASM
     Dosage: 20 MG, Q12H(20MG EVERY 12H DESCENDING || DOSE UNIT FREQUENCY: 40 MG-MILLIGRAMS || DOSE PER DOSE: 20
     Route: 042
     Dates: start: 20170120
  4. PARACETAMOL [Concomitant]
     Active Substance: ACETAMINOPHEN
     Indication: PAIN
     Dosage: 1 G, Q8H(1GR EVERY 8H || DOSE UNIT FREQUENCY: 3 G-GRAMS || DOSE PER DOSE: 1 G-GRAMS || NO. OF SHOTS
     Route: 048
     Dates: start: 20170129
  5. CARVEDILOL. [Concomitant]
     Active Substance: CARVEDILOL
     Indication: CARDIAC FAILURE CONGESTIVE
  6. CARVEDILOL. [Concomitant]
     Active Substance: CARVEDILOL
     Indication: CARDIAC FAILURE CHRONIC
     Dosage: 6.25 MG, Q12H(6.25 BREAKFAST AND DINNER|| DOSE UNIT FREQUENCY: 12.5 MG-MILLIGRAMS || DOSE PER DOSE:
     Route: 048
     Dates: start: 20170120, end: 20170129
  7. ENOXAPARIN SODIUM. [Suspect]
     Active Substance: ENOXAPARIN SODIUM
     Indication: ATRIAL FIBRILLATION
     Dosage: 60 MG, Q12H(60MG / 12H || UNIT DOSE FREQUENCY: 120 MG-MILLIGRAMS || DOSE PER DOSE: 60 MG MILLIGRAMS
     Route: 058
     Dates: start: 20170120, end: 20170129
  8. FUROSEMIDE. [Concomitant]
     Active Substance: FUROSEMIDE
     Indication: HYPERTENSION
  9. ATORVASTATIN [Concomitant]
     Active Substance: ATORVASTATIN
     Indication: DYSLIPIDAEMIA
     Dosage: 20 MG, QD(0-0-1 || UNIT DOSE FREQUENCY: 20 MG-MILLIGRAMS || DOSE PER DOSE: 20 MG-MILLIGRAMS || NO. O
     Route: 048
     Dates: start: 20170120
  10. LEVETIRACETAM. [Concomitant]
     Active Substance: LEVETIRACETAM
     Indication: EPILEPSY
     Dosage: 500 MG, Q8H(500 MG BREAKFAST AND DINNER || DOSE UNIT FREQUENCY: 1500 MG-MILLIGRAMS || DOSE PER DOSE:
     Route: 048
     Dates: start: 20170120
  11. LEVOFLOXACIN. [Concomitant]
     Active Substance: LEVOFLOXACIN
     Indication: LOWER RESPIRATORY TRACT INFECTION
     Dosage: 500 MG, QD(500MG || UNIT DOSE FREQUENCY: 500 MG-MILLIGRAMS || DOSE PER DOSE: 500 MG-MILLIGRAMS || NU
     Route: 042
     Dates: start: 20170120, end: 20170130
  12. SINTROM [Concomitant]
     Active Substance: ACENOCOUMAROL
     Indication: ATRIAL FIBRILLATION
     Dosage: 20 TABLETS
     Route: 048

REACTIONS (5)
  - Shock [Recovered/Resolved]
  - Condition aggravated [Recovered/Resolved]
  - Haematoma muscle [Recovered/Resolved]
  - Chest wall haematoma [Recovered/Resolved]
  - Anaemia [Recovered/Resolved]

NARRATIVE: CASE EVENT DATE: 201701
